FAERS Safety Report 6866001-9 (Version None)
Quarter: 2010Q3

REPORT INFORMATION
  Report Type: 
  Country: None (occurrence: None)
  Receive Date: 20100719
  Receipt Date: 20100709
  Transmission Date: 20110219
  Serious: No
  Sender: FDA-Public Use
  Company Number: 2010EU003208

PATIENT
  Age: 62 Year

DRUGS (6)
  1. TACROLIMUS [Suspect]
     Indication: LIVER TRANSPLANT
     Dosage: 3 MG, UNKOWN/D
  2. PREDNISOLONE [Concomitant]
  3. INSULIN (INSULIN) [Concomitant]
  4. AMLODIPINE (AMLOPINE) [Concomitant]
  5. URSODIOL [Concomitant]
  6. OMPRAZOLE (OMEPRAZOLE) [Concomitant]

REACTIONS (3)
  - ALTERNARIA INFECTION [None]
  - FUNGAL SKIN INFECTION [None]
  - HEPATORENAL SYNDROME [None]
